FAERS Safety Report 15575541 (Version 1)
Quarter: 2018Q4

REPORT INFORMATION
  Report Type: Spontaneous
  Country: FR (occurrence: FR)
  Receive Date: 20181101
  Receipt Date: 20181101
  Transmission Date: 20190205
  Serious: Yes (Other)
  Sender: FDA-Public Use
  Company Number: FR-TEVA-2018-FR-971632

PATIENT
  Age: 56 Year
  Sex: Male

DRUGS (3)
  1. PRAZEPAM [Concomitant]
     Active Substance: PRAZEPAM
     Route: 065
  2. ESCITALOPRAM [Concomitant]
     Active Substance: ESCITALOPRAM OXALATE
     Route: 065
  3. DULOXETINE BASE [Suspect]
     Active Substance: DULOXETINE
     Indication: DEPRESSION
     Dosage: 60 MILLIGRAM DAILY;
     Route: 048
     Dates: start: 20180621, end: 20180830

REACTIONS (2)
  - Condition aggravated [Recovering/Resolving]
  - Cholestasis [Recovering/Resolving]

NARRATIVE: CASE EVENT DATE: 20180828
